FAERS Safety Report 25002272 (Version 1)
Quarter: 2025Q1

REPORT INFORMATION
  Report Type: Spontaneous
  Country: US (occurrence: US)
  Receive Date: 20250224
  Receipt Date: 20250224
  Transmission Date: 20250408
  Serious: Yes (Life-Threatening, Other)
  Sender: BOEHRINGER INGELHEIM
  Company Number: US-Komodo Health-a23aa000005xdTuAAI

PATIENT
  Sex: Female

DRUGS (1)
  1. PRADAXA [Suspect]
     Active Substance: DABIGATRAN ETEXILATE MESYLATE
     Indication: Thrombosis prophylaxis
     Dates: start: 202408

REACTIONS (3)
  - Anaphylactic reaction [Not Recovered/Not Resolved]
  - Catheter site thrombosis [Recovered/Resolved]
  - Off label use [Unknown]
